FAERS Safety Report 8412246-6 (Version None)
Quarter: 2012Q2

REPORT INFORMATION
  Report Type: 
  Country: None (occurrence: None)
  Receive Date: 20120531
  Receipt Date: 20120531
  Transmission Date: 20120825
  Serious: Yes (Hospitalization)
  Sender: FDA-Public Use
  Company Number: None

PATIENT
  Age: 89 Year
  Sex: Male
  Weight: 105.9 kg

DRUGS (1)
  1. ASPIRIN [Suspect]
     Indication: CEREBROVASCULAR ACCIDENT PROPHYLAXIS
     Dosage: 325 MG EVERY DAY PO
     Route: 048
     Dates: start: 19990209, end: 20120316

REACTIONS (7)
  - FALL [None]
  - BLOOD PRESSURE INCREASED [None]
  - AGITATION [None]
  - SUBDURAL HAEMATOMA [None]
  - CONFUSIONAL STATE [None]
  - INTRACRANIAL PRESSURE INCREASED [None]
  - CEREBRAL HAEMORRHAGE [None]
